FAERS Safety Report 20053288 (Version 2)
Quarter: 2022Q2

REPORT INFORMATION
  Report Type: Spontaneous
  Country: US (occurrence: US)
  Receive Date: 20211110
  Receipt Date: 20220413
  Transmission Date: 20220721
  Serious: No
  Sender: FDA-Public Use
  Company Number: US-PFIZER INC-202101393978

PATIENT
  Age: 64 Year
  Sex: Male
  Weight: 97.959 kg

DRUGS (2)
  1. INLYTA [Suspect]
     Active Substance: AXITINIB
     Indication: Renal cell carcinoma
     Dosage: 5 MG, 2X/DAY
     Route: 048
     Dates: start: 20210915
  2. KEYTRUDA [Concomitant]
     Active Substance: PEMBROLIZUMAB
     Dosage: 25 MG/ML (100 MG/4 ML)

REACTIONS (4)
  - Neoplasm progression [Unknown]
  - Dysphonia [Unknown]
  - Constipation [Unknown]
  - Fatigue [Recovered/Resolved]
